FAERS Safety Report 5177569-5 (Version None)
Quarter: 2006Q4

REPORT INFORMATION
  Report Type: 
  Country: None (occurrence: None)
  Receive Date: 20061207
  Receipt Date: 20061128
  Transmission Date: 20070319
  Serious: Yes (Other)
  Sender: FDA-Public Use
  Company Number: 2006147416

PATIENT
  Age: 55 Year
  Sex: Male

DRUGS (12)
  1. EXUBERA [Suspect]
     Indication: DIABETES MELLITUS
     Dosage: 6 MG (2 MG, 3 IN 1 D)
     Dates: start: 20061110, end: 20061127
  2. GLYBURIDE [Concomitant]
  3. AVANDIA [Concomitant]
  4. CARDURA [Concomitant]
  5. ALLOPURINOL [Concomitant]
  6. METOPROLOL TARTRATE [Concomitant]
  7. REGLAN [Concomitant]
  8. VICODIN [Concomitant]
  9. LIPITOR [Concomitant]
  10. ZANTAC [Concomitant]
  11. ZETIA [Concomitant]
  12. NIZORAL [Concomitant]

REACTIONS (6)
  - BLOOD GLUCOSE INCREASED [None]
  - DISTURBANCE IN ATTENTION [None]
  - FEELING ABNORMAL [None]
  - MENTAL DISORDER [None]
  - MOOD SWINGS [None]
  - VISION BLURRED [None]
